FAERS Safety Report 8778679 (Version 3)
Quarter: 2014Q2

REPORT INFORMATION
  Report Type: Spontaneous
  Country: US (occurrence: US)
  Receive Date: 20120912
  Receipt Date: 20131009
  Transmission Date: 20141212
  Serious: Yes (Hospitalization, Other)
  Sender: FDA-Public Use
  Company Number: US-GILEAD-2012-0060942

PATIENT
  Age: 51 Year
  Sex: Female

DRUGS (2)
  1. LETAIRIS [Suspect]
     Indication: PULMONARY HYPERTENSION
     Dosage: 10 MG, UNK
     Route: 048
     Dates: start: 20120119
  2. LETAIRIS [Suspect]
     Indication: SYSTEMIC SCLEROSIS

REACTIONS (4)
  - Lung disorder [Unknown]
  - Oxygen saturation decreased [Unknown]
  - Asthenia [Recovered/Resolved]
  - Dyspnoea [Recovered/Resolved]
